FAERS Safety Report 7775040-5 (Version None)
Quarter: 2011Q3

REPORT INFORMATION
  Report Type: 
  Country: None (occurrence: None)
  Receive Date: 20110923
  Receipt Date: 20110912
  Transmission Date: 20111222
  Serious: Yes (Hospitalization)
  Sender: FDA-Public Use
  Company Number: US-ELI_LILLY_AND_COMPANY-US201109004989

PATIENT
  Age: 57 Year
  Sex: Female

DRUGS (3)
  1. ZYPREXA [Suspect]
     Indication: BIPOLAR DISORDER
     Dosage: 10 MG, QD
  2. AMBIEN [Concomitant]
  3. ANTIDEPRESSANTS [Concomitant]

REACTIONS (8)
  - FATIGUE [None]
  - FOOT FRACTURE [None]
  - SENSORY LOSS [None]
  - WEIGHT INCREASED [None]
  - HOSPITALISATION [None]
  - MALAISE [None]
  - DELUSION [None]
  - DRUG DOSE OMISSION [None]
